FAERS Safety Report 15122328 (Version 1)
Quarter: 2018Q3

REPORT INFORMATION
  Report Type: Spontaneous
  Country: FR (occurrence: FR)
  Receive Date: 20180709
  Receipt Date: 20180709
  Transmission Date: 20181010
  Serious: Yes (Hospitalization)
  Sender: FDA-Public Use
  Company Number: FR-TEVA-2018-FR-923093

PATIENT
  Age: 73 Year
  Sex: Male

DRUGS (15)
  1. APIDRA [Concomitant]
     Active Substance: INSULIN GLULISINE
  2. FUROSEMIDE. [Concomitant]
     Active Substance: FUROSEMIDE
  3. CHLORHYDRATE DE LERCANIDIPINE [Concomitant]
  4. CHLORHYDRATE D^ALFUZOSINE [Concomitant]
  5. PRAVASTATINE SODIQUE [Concomitant]
     Active Substance: PRAVASTATIN SODIUM
  6. FLUOROURACIL. [Suspect]
     Active Substance: FLUOROURACIL
     Indication: PROSTATE CANCER
     Route: 042
     Dates: start: 20180518, end: 20180518
  7. CARBOPLATIN. [Suspect]
     Active Substance: CARBOPLATIN
     Indication: PROSTATE CANCER
     Route: 042
     Dates: start: 20180518, end: 20180518
  8. ZOPICLONE [Concomitant]
     Active Substance: ZOPICLONE
  9. DOLIPRANE [Concomitant]
     Active Substance: ACETAMINOPHEN
  10. TAXOTERE [Suspect]
     Active Substance: DOCETAXEL
     Indication: PROSTATE CANCER
     Route: 042
     Dates: start: 20180518, end: 20180518
  11. ACTISKENAN [Concomitant]
     Active Substance: MORPHINE SULFATE
  12. ABASAGLAR [Concomitant]
     Active Substance: INSULIN GLARGINE
  13. SKENAN [Concomitant]
     Active Substance: MORPHINE SULFATE
  14. PERMIXON [Concomitant]
     Active Substance: HERBALS\SAW PALMETTO
  15. ALLOPURINOL. [Concomitant]
     Active Substance: ALLOPURINOL

REACTIONS (3)
  - Acute kidney injury [Recovering/Resolving]
  - Dehydration [Recovered/Resolved]
  - Diarrhoea [Recovered/Resolved]

NARRATIVE: CASE EVENT DATE: 20180527
